FAERS Safety Report 5923527-X (Version None)
Quarter: 2008Q4

REPORT INFORMATION
  Report Type: 
  Country: None (occurrence: None)
  Receive Date: 20081015
  Receipt Date: 20081001
  Transmission Date: 20090506
  Serious: Yes (Hospitalization, Other)
  Sender: FDA-Public Use
  Company Number: 53069

PATIENT
  Age: 29 Year
  Sex: Female

DRUGS (1)
  1. AZATHIOPRINE SOLUTION FOR INJ. 100MG - BEDFORD LABS, INC. [Suspect]
     Indication: COGAN'S SYNDROME
     Dosage: 150MG/DAY

REACTIONS (2)
  - DRUG RESISTANCE [None]
  - INTERNATIONAL NORMALISED RATIO DECREASED [None]
